FAERS Safety Report 7024667-7 (Version None)
Quarter: 2010Q4

REPORT INFORMATION
  Report Type: 
  Country: None (occurrence: None)
  Receive Date: 20101001
  Receipt Date: 20100922
  Transmission Date: 20110411
  Serious: No
  Sender: FDA-Public Use
  Company Number: US-PFIZER INC-2010019010

PATIENT
  Sex: Female
  Weight: 43.1 kg

DRUGS (4)
  1. CHANTIX [Suspect]
     Indication: SMOKING CESSATION THERAPY
     Dosage: 0.5 MG, 1X/DAY
     Route: 048
     Dates: start: 20100101, end: 20100115
  2. LISINOPRIL [Concomitant]
     Indication: HYPERTENSION
     Dosage: UNK
  3. CELEBREX [Concomitant]
     Indication: ARTHRITIS
     Dosage: UNK
  4. POTASSIUM [Concomitant]
     Dosage: UNK

REACTIONS (8)
  - ASTHENIA [None]
  - DECREASED APPETITE [None]
  - FEELING ABNORMAL [None]
  - FLATULENCE [None]
  - MALAISE [None]
  - NAUSEA [None]
  - VOMITING [None]
  - WEIGHT DECREASED [None]
